FAERS Safety Report 23689289 (Version 1)
Quarter: 2024Q1

REPORT INFORMATION
  Report Type: Spontaneous
  Country: US (occurrence: US)
  Receive Date: 20240330
  Receipt Date: 20240330
  Transmission Date: 20240410
  Serious: No
  Sender: FDA-Public Use
  Company Number: US-SA-SAC20240327000679

PATIENT
  Age: 30 Year
  Sex: Male
  Weight: 106.5 kg

DRUGS (4)
  1. DUPIXENT [Suspect]
     Active Substance: DUPILUMAB
     Indication: Eosinophilic oesophagitis
     Dosage: 300 MG, QW
     Route: 058
     Dates: start: 20240301
  2. VITAMINS [Concomitant]
     Active Substance: VITAMINS
  3. TESTOSTERONE [Concomitant]
     Active Substance: TESTOSTERONE
  4. OMEPRAZOLE [Concomitant]
     Active Substance: OMEPRAZOLE

REACTIONS (2)
  - Injection site swelling [Unknown]
  - Injection site pruritus [Unknown]
